FAERS Safety Report 11743380 (Version 1)
Quarter: 2015Q4

REPORT INFORMATION
  Report Type: Spontaneous
  Country: US (occurrence: US)
  Receive Date: 20151116
  Receipt Date: 20151116
  Transmission Date: 20160304
  Serious: No
  Sender: FDA-Public Use
  Company Number: US-009507513-1511USA007889

PATIENT
  Sex: Male

DRUGS (1)
  1. BELSOMRA [Suspect]
     Active Substance: SUVOREXANT
     Indication: INSOMNIA
     Dosage: 10 MG, QPM
     Route: 048
     Dates: start: 201509, end: 2015

REACTIONS (1)
  - Nightmare [Unknown]

NARRATIVE: CASE EVENT DATE: 201509
